FAERS Safety Report 20632259 (Version 2)
Quarter: 2022Q3

REPORT INFORMATION
  Report Type: Other
  Country: PK (occurrence: None)
  Receive Date: 20220324
  Receipt Date: 20220908
  Transmission Date: 20221027
  Serious: Yes (Other)
  Sender: FDA-Public Use
  Company Number: PK-ROCHE-3051653

PATIENT
  Age: 65 Year
  Sex: Male

DRUGS (1)
  1. TECENTRIQ [Suspect]
     Active Substance: ATEZOLIZUMAB
     Indication: Non-small cell lung cancer
     Route: 042
     Dates: start: 20210313, end: 20220216

REACTIONS (2)
  - Lower respiratory tract infection [Unknown]
  - Pyrexia [Unknown]
